FAERS Safety Report 24148743 (Version 1)
Quarter: 2024Q3

REPORT INFORMATION
  Report Type: Spontaneous
  Country: US (occurrence: US)
  Receive Date: 20240729
  Receipt Date: 20240729
  Transmission Date: 20241017
  Serious: No
  Sender: AMERICAN REGENT
  Company Number: US-AMERICAN REGENT INC-2024001623

PATIENT
  Sex: Female

DRUGS (1)
  1. ZINC SULFATE [Suspect]
     Active Substance: ZINC SULFATE
     Indication: Product used for unknown indication
     Dosage: UNK
     Route: 030

REACTIONS (3)
  - Injection site nodule [Unknown]
  - Injection site pain [Unknown]
  - Incorrect route of product administration [Unknown]
